FAERS Safety Report 18337107 (Version 2)
Quarter: 2020Q4

REPORT INFORMATION
  Report Type: Other
  Country: CN (occurrence: CN)
  Receive Date: 20201001
  Receipt Date: 20201002
  Transmission Date: 20210113
  Serious: Yes (Other)
  Sender: FDA-Public Use
  Company Number: CN-ROCHE-2686878

PATIENT

DRUGS (4)
  1. ALTEPLASE. [Suspect]
     Active Substance: ALTEPLASE
     Indication: JOINT ARTHROPLASTY
  2. WARFARIN [Concomitant]
     Active Substance: WARFARIN
     Indication: PRODUCT USED FOR UNKNOWN INDICATION
     Dosage: 3-5MG/D
     Route: 048
  3. ALTEPLASE. [Suspect]
     Active Substance: ALTEPLASE
     Indication: PULMONARY EMBOLISM
     Dosage: THE DOSE WAS 1-1.2 MG/KG, AND 100 ML OF NORMAL SALINE WAS ADDED FOR INTRAVENOUS DRIP. THE MAXIMUM DO
     Route: 042
  4. ALTEPLASE. [Suspect]
     Active Substance: ALTEPLASE
     Indication: FRACTURE

REACTIONS (2)
  - No adverse event [Unknown]
  - Drug ineffective [Unknown]
